FAERS Safety Report 22615666 (Version 2)
Quarter: 2023Q2

REPORT INFORMATION
  Report Type: Spontaneous
  Country: CA (occurrence: CA)
  Receive Date: 20230619
  Receipt Date: 20230620
  Transmission Date: 20230722
  Serious: Yes (Other)
  Sender: FDA-Public Use
  Company Number: CA-PFIZER INC-202300222410

PATIENT
  Age: 68 Year
  Sex: Female

DRUGS (3)
  1. ATROPINE SULFATE [Suspect]
     Active Substance: ATROPINE SULFATE
     Dosage: UNK
     Route: 065
  2. IRINOTECAN HYDROCHLORIDE [Suspect]
     Active Substance: IRINOTECAN HYDROCHLORIDE
     Indication: Adenocarcinoma pancreas
     Dosage: 180 MG/M2
     Route: 042
  3. OXALIPLATIN [Suspect]
     Active Substance: OXALIPLATIN
     Indication: Adenocarcinoma pancreas
     Dosage: 80 MG/M2, 1 EVERY 2 WEEKS
     Route: 042

REACTIONS (4)
  - Dysarthria [Recovered/Resolved]
  - Neuropathy peripheral [Recovered/Resolved]
  - Visual impairment [Recovered/Resolved]
  - Off label use [Unknown]
